FAERS Safety Report 8143049 (Version 5)
Quarter: 2012Q4

REPORT INFORMATION
  Report Type: Report from Study
  Country: CZ (occurrence: CZ)
  Receive Date: 20110919
  Receipt Date: 20121030
  Transmission Date: 20130627
  Serious: Yes (Hospitalization, Other)
  Sender: FDA-Public Use
  Company Number: CZ-ABBOTT-11P-217-0855162-00

PATIENT
  Age: 55 Year
  Sex: Female
  Weight: 66 kg

DRUGS (2)
  1. HUMIRA 40 MG/ 0.8 ML PRE-FILLED SYRINGE [Suspect]
     Indication: PSORIATIC ARTHROPATHY
     Route: 058
     Dates: start: 20110711
  2. AZAPRINE [Concomitant]
     Indication: PRODUCT USED FOR UNKNOWN INDICATION

REACTIONS (19)
  - Oxygen saturation decreased [Recovered/Resolved]
  - Dyspnoea [Recovered/Resolved]
  - Injection site pain [Recovered/Resolved]
  - Body temperature increased [Recovered/Resolved]
  - Asthenia [Unknown]
  - Cough [Unknown]
  - Headache [Unknown]
  - Pharyngeal erythema [Unknown]
  - Tonsillar hypertrophy [Unknown]
  - Tonsillar ulcer [Unknown]
  - Hypotension [Unknown]
  - Pallor [Unknown]
  - C-reactive protein increased [Unknown]
  - Fibrin D dimer increased [Unknown]
  - Asthenia [Unknown]
  - Nausea [Unknown]
  - Bronchitis [Unknown]
  - Injection site rash [Unknown]
  - Hypersensitivity [Unknown]
